FAERS Safety Report 24530522 (Version 1)
Quarter: 2024Q4

REPORT INFORMATION
  Report Type: Spontaneous
  Country: US (occurrence: US)
  Receive Date: 20241021
  Receipt Date: 20241021
  Transmission Date: 20250115
  Serious: No
  Sender: MYLAN
  Company Number: US-MYLANLABS-2024M1092079

PATIENT
  Sex: Female
  Weight: 79.38 kg

DRUGS (3)
  1. ESTRADIOL TRANSDERMAL SYSTEM [Suspect]
     Active Substance: ESTRADIOL
     Indication: Vulvovaginal dryness
     Dosage: 0.025 MILLIGRAM, QD (24 HR MG / 24 HR) (ONCE A WEEK)
     Route: 062
     Dates: end: 20241003
  2. HYDROCHLOROTHIAZIDE [Concomitant]
     Active Substance: HYDROCHLOROTHIAZIDE
     Dosage: UNK
     Route: 065
  3. LOSARTAN [Concomitant]
     Active Substance: LOSARTAN
     Dosage: UNK
     Route: 065

REACTIONS (2)
  - Application site burn [Not Recovered/Not Resolved]
  - Application site pain [Not Recovered/Not Resolved]
